FAERS Safety Report 8333317-9 (Version None)
Quarter: 2012Q1

REPORT INFORMATION
  Report Type: 
  Country: None (occurrence: None)
  Receive Date: 20120327
  Receipt Date: 20110328
  Transmission Date: 20120608
  Serious: Yes (Other)
  Sender: FDA-Public Use
  Company Number: PHHY2011US25607

PATIENT
  Age: 64 Year

DRUGS (1)
  1. GLEEVEC [Suspect]
     Dosage: 400 MG, ONCE/SINGLE, ORAL
     Route: 048
     Dates: start: 20110302

REACTIONS (7)
  - DYSPNOEA [None]
  - OCCULT BLOOD POSITIVE [None]
  - DIARRHOEA [None]
  - FATIGUE [None]
  - ANAEMIA [None]
  - PERIORBITAL OEDEMA [None]
  - DYSGEUSIA [None]
